FAERS Safety Report 7705998-1 (Version None)
Quarter: 2011Q3

REPORT INFORMATION
  Report Type: 
  Country: None (occurrence: None)
  Receive Date: 20110824
  Receipt Date: 20110819
  Transmission Date: 20111222
  Serious: Yes (Death, Hospitalization, Other)
  Sender: FDA-Public Use
  Company Number: PHHY2011CO53908

PATIENT
  Sex: Female

DRUGS (7)
  1. SANDOSTATIN LAR [Suspect]
     Dosage: 20 MG, UNK
     Route: 030
     Dates: start: 20110520
  2. OMEPRAZOLE [Concomitant]
  3. METOPROLOL [Concomitant]
  4. SANDOSTATIN LAR [Suspect]
     Dosage: 30 MG, EACH 15 DAYS
     Dates: start: 20110628
  5. SANDOSTATIN LAR [Suspect]
     Dosage: 0.1 MG, EACH 8 HOURS
     Route: 030
     Dates: start: 20110401
  6. SANDOSTATIN LAR [Suspect]
     Indication: NEUROENDOCRINE TUMOUR
     Route: 030
     Dates: start: 20110404
  7. PROCTO-GLYVENOL [Suspect]
     Indication: HAEMORRHOIDS
     Dosage: 5 G, UNK

REACTIONS (7)
  - METASTASES TO LIVER [None]
  - WEIGHT DECREASED [None]
  - TACHYCARDIA [None]
  - HYPOTENSION [None]
  - DIARRHOEA [None]
  - ASTHENIA [None]
  - NEOPLASM MALIGNANT [None]
